FAERS Safety Report 11573330 (Version 2)
Quarter: 2015Q4

REPORT INFORMATION
  Report Type: Spontaneous
  Country: US (occurrence: US)
  Receive Date: 20150916
  Receipt Date: 20151027
  Transmission Date: 20160304
  Serious: No
  Sender: FDA-Public Use
  Company Number: US-ELI_LILLY_AND_COMPANY-US200910007517

PATIENT
  Sex: Female

DRUGS (4)
  1. FORTEO [Suspect]
     Active Substance: TERIPARATIDE
     Indication: OSTEOPOROSIS
     Dosage: 20 UG, DAILY (1/D)
  2. COUMADIN [Concomitant]
     Active Substance: WARFARIN SODIUM
  3. FORTEO [Suspect]
     Active Substance: TERIPARATIDE
     Dosage: 20 UG, DAILY (1/D)
  4. LASIX [Concomitant]
     Active Substance: FUROSEMIDE

REACTIONS (4)
  - Injection site bruising [Recovered/Resolved]
  - Vertebroplasty [Unknown]
  - Discomfort [Unknown]
  - Spinal fracture [Recovering/Resolving]

NARRATIVE: CASE EVENT DATE: 2009
